FAERS Safety Report 22369199 (Version 2)
Quarter: 2023Q2

REPORT INFORMATION
  Report Type: Spontaneous
  Country: US (occurrence: US)
  Receive Date: 20230525
  Receipt Date: 20230616
  Transmission Date: 20230721
  Serious: Yes (Death, Hospitalization)
  Sender: FDA-Public Use
  Company Number: US-AMNEAL PHARMACEUTICALS-2023-AMRX-01787

PATIENT
  Sex: Male

DRUGS (1)
  1. RYTARY [Suspect]
     Active Substance: CARBIDOPA\LEVODOPA
     Indication: Product used for unknown indication
     Dosage: 2 CAPSULES BY MOUTH FOUR TIMES A DAY AND TAKE 1 CAPSULE BY MOUTH AT MIDNIGHT
     Route: 048

REACTIONS (2)
  - Unevaluable event [Fatal]
  - Dehydration [Unknown]
